FAERS Safety Report 8534837-4 (Version None)
Quarter: 2012Q3

REPORT INFORMATION
  Report Type: 
  Country: None (occurrence: None)
  Receive Date: 20120724
  Receipt Date: 20120710
  Transmission Date: 20120928
  Serious: Yes (Hospitalization)
  Sender: FDA-Public Use
  Company Number: CA-ARROW-2012-12119

PATIENT
  Age: 57 Year
  Sex: Female

DRUGS (2)
  1. DILTIAZEM HYDROCHLORIDE [Suspect]
     Indication: INTENTIONAL OVERDOSE
     Dosage: UNKNOWN AMOUNT OF SUSTAINED RELEASE 360MG
     Route: 048
  2. BISOPROLOL FUMARATE [Suspect]
     Indication: INTENTIONAL OVERDOSE
     Dosage: UNKNOWN AMOUNT OF 5 MG
     Route: 048

REACTIONS (7)
  - INTENTIONAL OVERDOSE [None]
  - CARDIOGENIC SHOCK [None]
  - HYPOTENSION [None]
  - SINUS BRADYCARDIA [None]
  - POISONING DELIBERATE [None]
  - ECG SIGNS OF MYOCARDIAL ISCHAEMIA [None]
  - CHEST PAIN [None]
